FAERS Safety Report 12476287 (Version 1)
Quarter: 2016Q2

REPORT INFORMATION
  Report Type: Spontaneous
  Country: JP (occurrence: JP)
  Receive Date: 20160617
  Receipt Date: 20160617
  Transmission Date: 20160815
  Serious: Yes (Death, Other)
  Sender: FDA-Public Use
  Company Number: PHJP2007JP002155

PATIENT
  Age: 68 Year
  Sex: Male

DRUGS (7)
  1. REGITIN [Suspect]
     Active Substance: PHENTOLAMINE MESYLATE
     Indication: PROCTALGIA
  2. SODIUM CHLORIDE SOLUTION [Concomitant]
     Active Substance: SODIUM CHLORIDE
     Indication: BACK PAIN
     Route: 041
  3. RINGERS SOLUTION [Concomitant]
     Active Substance: RINGER^S SOLUTION
     Dosage: 500 ML, QD
     Route: 041
  4. REGITIN [Suspect]
     Active Substance: PHENTOLAMINE MESYLATE
     Indication: HEPATOCELLULAR CARCINOMA
     Dosage: 80 MG, QD
     Route: 041
  5. SODIUM CHLORIDE SOLUTION [Concomitant]
     Active Substance: SODIUM CHLORIDE
     Dosage: 112 ML, QD
     Route: 041
  6. RINGERS SOLUTION [Concomitant]
     Active Substance: RINGER^S SOLUTION
     Indication: BACK PAIN
     Route: 041
  7. REGITIN [Suspect]
     Active Substance: PHENTOLAMINE MESYLATE
     Indication: BACK PAIN
     Dosage: 80 MG, QD
     Route: 041

REACTIONS (5)
  - Tachycardia [Recovering/Resolving]
  - Nausea [Recovering/Resolving]
  - Hypotension [Recovering/Resolving]
  - Death [Fatal]
  - Increased appetite [Recovering/Resolving]
